FAERS Safety Report 7293356-6 (Version None)
Quarter: 2011Q1

REPORT INFORMATION
  Report Type: 
  Country: None (occurrence: None)
  Receive Date: 20110215
  Receipt Date: 20110204
  Transmission Date: 20110831
  Serious: Yes (Other)
  Sender: FDA-Public Use
  Company Number: PL-WATSON-2011-01558

PATIENT
  Age: 31 Year
  Sex: Male

DRUGS (1)
  1. HYDROCORTISONE ACETATE [Suspect]
     Indication: CROHN'S DISEASE
     Dosage: 600 MG, DAILY
     Route: 042

REACTIONS (2)
  - CEREBRAL THROMBOSIS [None]
  - CEREBRAL HAEMORRHAGE [None]
